FAERS Safety Report 21259508 (Version 2)
Quarter: 2022Q3

REPORT INFORMATION
  Report Type: Report from Study
  Country: US (occurrence: US)
  Receive Date: 20220826
  Receipt Date: 20220928
  Transmission Date: 20221027
  Serious: Yes (Other)
  Sender: FDA-Public Use
  Company Number: US-ABBVIE-22K-163-4517078-00

PATIENT
  Sex: Male

DRUGS (4)
  1. HUMIRA [Suspect]
     Active Substance: ADALIMUMAB
     Indication: Crohn^s disease
     Route: 058
  2. MODERNA COVID-19 VACCINE [Concomitant]
     Active Substance: ELASOMERAN
     Indication: COVID-19 immunisation
     Dosage: DOSE 1  IN ONCE, 1ST DOSE
     Route: 030
     Dates: start: 20210228, end: 20210228
  3. MODERNA COVID-19 VACCINE [Concomitant]
     Active Substance: ELASOMERAN
     Indication: COVID-19 immunisation
     Dosage: DOSE 1 IN ONCE, 2ND DOSE
     Route: 030
     Dates: start: 20210425, end: 20210425
  4. COVID-19 vaccine [Concomitant]
     Indication: COVID-19 immunisation
     Dosage: DOSE 1 IN ONCE, BOOSTER DOSE
     Route: 030
     Dates: start: 20211121, end: 20211121

REACTIONS (1)
  - Gastrointestinal scarring [Unknown]
